FAERS Safety Report 13704857 (Version 1)
Quarter: 2017Q2

REPORT INFORMATION
  Report Type: Report from Study
  Country: CA (occurrence: CA)
  Receive Date: 20170630
  Receipt Date: 20170630
  Transmission Date: 20170830
  Serious: Yes (Other)
  Sender: FDA-Public Use
  Company Number: PHHY2016CA038593

PATIENT
  Age: 77 Year
  Sex: Male

DRUGS (5)
  1. SANDOSTATIN LAR DEPOT [Suspect]
     Active Substance: OCTREOTIDE ACETATE
     Indication: GASTRIC CANCER
     Dosage: 30 MG, QMO (ONCE A MONTH)
     Route: 030
     Dates: start: 20160122
  2. LORAZEPAM. [Concomitant]
     Active Substance: LORAZEPAM
     Indication: PRODUCT USED FOR UNKNOWN INDICATION
     Dosage: 1 MG, PRN
     Route: 065
  3. BISOPROLOL [Concomitant]
     Active Substance: BISOPROLOL
     Indication: PRODUCT USED FOR UNKNOWN INDICATION
     Dosage: 5 MG, QD
     Route: 065
  4. VALSARTAN. [Suspect]
     Active Substance: VALSARTAN
     Indication: BLOOD PRESSURE INCREASED
     Dosage: UNK
     Route: 065
  5. SANDOSTATIN LAR DEPOT [Suspect]
     Active Substance: OCTREOTIDE ACETATE
     Indication: CARCINOID TUMOUR
     Dosage: 40 MG, QMO (ONCE A MONTH)
     Route: 030
     Dates: start: 20161205, end: 20170503

REACTIONS (17)
  - Hypoaesthesia [Recovered/Resolved]
  - Negative thoughts [Unknown]
  - Respiratory rate increased [Unknown]
  - Blood pressure increased [Recovering/Resolving]
  - Depression [Unknown]
  - Headache [Unknown]
  - Diarrhoea [Unknown]
  - Injection site reaction [Unknown]
  - Body temperature decreased [Unknown]
  - Throat irritation [Unknown]
  - Viral upper respiratory tract infection [Recovered/Resolved]
  - Drug ineffective [Unknown]
  - Arrhythmia [Unknown]
  - Carcinoid tumour [Unknown]
  - Muscle spasms [Unknown]
  - Malignant neoplasm progression [Unknown]
  - Musculoskeletal stiffness [Unknown]

NARRATIVE: CASE EVENT DATE: 2016
